FAERS Safety Report 15611229 (Version 1)
Quarter: 2018Q4

REPORT INFORMATION
  Report Type: Report from Study
  Country: US (occurrence: US)
  Receive Date: 20181113
  Receipt Date: 20181113
  Transmission Date: 20190205
  Serious: Yes (Death, Other)
  Sender: FDA-Public Use
  Company Number: US-NAPPMUNDI-USA-2017-0145172

PATIENT
  Age: 12 Year
  Sex: Female

DRUGS (1)
  1. OXYCODONE HYDROCHLORIDE. [Suspect]
     Active Substance: OXYCODONE HYDROCHLORIDE
     Indication: PRODUCT USED FOR UNKNOWN INDICATION
     Dosage: 30 X 40 MG, SINGLE
     Route: 048
     Dates: start: 20160616, end: 20160616

REACTIONS (3)
  - Pulmonary oedema [Unknown]
  - Intentional overdose [Fatal]
  - Expired product administered [Recovered/Resolved]

NARRATIVE: CASE EVENT DATE: 20160616
